FAERS Safety Report 5441788-0 (Version None)
Quarter: 2007Q3

REPORT INFORMATION
  Report Type: 
  Country: None (occurrence: None)
  Receive Date: 20070904
  Receipt Date: 20070824
  Transmission Date: 20080115
  Serious: Yes (Other)
  Sender: FDA-Public Use
  Company Number: FI-JNJFOC-20070805297

PATIENT
  Age: 28 Year
  Sex: Female

DRUGS (2)
  1. REMICADE [Suspect]
     Route: 042
  2. REMICADE [Suspect]
     Indication: PSORIASIS
     Route: 042

REACTIONS (4)
  - ARTHROPATHY [None]
  - COMPLEMENT FACTOR C4 DECREASED [None]
  - LARYNGEAL OEDEMA [None]
  - SERUM SICKNESS [None]
